FAERS Safety Report 8872556 (Version 1)
Quarter: 2012Q4

REPORT INFORMATION
  Report Type: Spontaneous
  Country: US (occurrence: None)
  Receive Date: 20121031
  Receipt Date: 20121031
  Transmission Date: 20130627
  Serious: Yes (Other)
  Sender: FDA-Public Use
  Company Number: None

PATIENT
  Age: 62 Year
  Sex: Female
  Weight: 124.74 kg

DRUGS (4)
  1. ROPIVACAINE [Suspect]
  2. KETOROLAC [Suspect]
  3. EPINEPHRINE [Suspect]
  4. CLONIDINE [Suspect]

REACTIONS (1)
  - Serratia infection [None]
